FAERS Safety Report 23983126 (Version 1)
Quarter: 2024Q2

REPORT INFORMATION
  Report Type: Spontaneous
  Country: US (occurrence: US)
  Receive Date: 20240617
  Receipt Date: 20240617
  Transmission Date: 20240715
  Serious: No
  Sender: FDA-Public Use
  Company Number: US-BRISTOL-MYERS SQUIBB COMPANY-2024-096871

PATIENT
  Age: 35 Year
  Sex: Female

DRUGS (1)
  1. SPRYCEL [Suspect]
     Active Substance: DASATINIB
     Indication: Chronic myeloid leukaemia
     Route: 048
     Dates: start: 202405

REACTIONS (7)
  - Fatigue [Unknown]
  - Pain [Unknown]
  - Bone pain [Unknown]
  - Neuralgia [Unknown]
  - Rash [Unknown]
  - Brain fog [Unknown]
  - Nausea [Unknown]
